FAERS Safety Report 11008254 (Version 1)
Quarter: 2015Q1

REPORT INFORMATION
  Report Type: Spontaneous
  Country: US (occurrence: None)
  Receive Date: 20150313
  Receipt Date: 20150313
  Transmission Date: 20150721
  Serious: Yes (Other)
  Sender: FDA-Public Use
  Company Number: 1408972

PATIENT
  Age: 70 Year
  Sex: Female
  Weight: 81.65 kg

DRUGS (17)
  1. EPIPEN [Concomitant]
     Active Substance: EPINEPHRINE
  2. PROAIR (UNITED STATES) (SALBUTAMOL SULFATE) [Concomitant]
  3. PULMICORT TURBUHALER [Concomitant]
     Active Substance: BUDESONIDE
  4. REQUIP [Concomitant]
     Active Substance: ROPINIROLE HYDROCHLORIDE
  5. XOPENEX (LEVOSALBUTAMOL HYDROCHLORIDE) [Concomitant]
  6. CALCIUM CARBONATE. [Concomitant]
     Active Substance: CALCIUM CARBONATE
  7. ALTACE (RAMIPRIL) [Concomitant]
  8. NEXIUM [Concomitant]
     Active Substance: ESOMEPRAZOLE MAGNESIUM
  9. SINGULAR (MONTELUKAST SODIUM) [Concomitant]
  10. XOLAIR [Suspect]
     Active Substance: OMALIZUMAB
     Indication: ASTHMA
     Dosage: LOT ?592125?EXP DATE ?31-NOV-17
     Route: 058
     Dates: start: 20110718
  11. SPIRIVA HANDIHALER (TIOTROPIUM BROMIDE) [Concomitant]
  12. BROVANA (ARFORMOTEROL TARTRATE) [Concomitant]
  13. DIOVAN [Concomitant]
     Active Substance: VALSARTAN
  14. BACTROBAN NASAL OINTMENT (MUPIROCIN CALCIUM) [Concomitant]
  15. ASPIRIN. [Concomitant]
     Active Substance: ASPIRIN
  16. LASIX [Concomitant]
     Active Substance: FUROSEMIDE
  17. BENICAR [Concomitant]
     Active Substance: OLMESARTAN MEDOXOMIL

REACTIONS (8)
  - Restless legs syndrome [None]
  - Rash macular [None]
  - Acute sinusitis [None]
  - Blood immunoglobulin E increased [None]
  - Bronchial hyperreactivity [None]
  - Hypersensitivity [None]
  - Wheezing [None]
  - Cough [None]
